FAERS Safety Report 10085625 (Version 2)
Quarter: 2014Q2

REPORT INFORMATION
  Report Type: Spontaneous
  Country: US (occurrence: US)
  Receive Date: 20140418
  Receipt Date: 20140515
  Transmission Date: 20141212
  Serious: Yes (Hospitalization)
  Sender: FDA-Public Use
  Company Number: US-JNJFOC-20140409508

PATIENT
  Age: 48 Year
  Sex: Female
  Weight: 67.59 kg

DRUGS (1)
  1. INVOKANA [Suspect]
     Indication: TYPE 2 DIABETES MELLITUS
     Route: 048

REACTIONS (4)
  - Dehydration [Recovered/Resolved]
  - Blood sodium decreased [Recovered/Resolved]
  - Disorientation [Recovered/Resolved]
  - Hyponatraemia [Recovered/Resolved]
